FAERS Safety Report 7608720-2 (Version None)
Quarter: 2011Q3

REPORT INFORMATION
  Report Type: 
  Country: None (occurrence: None)
  Receive Date: 20110714
  Receipt Date: 20110705
  Transmission Date: 20111222
  Serious: Yes (Hospitalization, Other)
  Sender: FDA-Public Use
  Company Number: GB-ASTRAZENECA-2011SE40128

PATIENT
  Age: 78 Year
  Sex: Female

DRUGS (18)
  1. CALCIUM CARBONATE [Concomitant]
  2. DIGOXIN [Concomitant]
  3. SPIRONOLACTONE [Concomitant]
  4. ALENDRONATE SODIUM [Concomitant]
  5. FUROSEMIDE [Concomitant]
  6. ZOLPIDEM TARTRATE [Concomitant]
  7. METOPROLOL SUCCINATE [Suspect]
     Route: 048
  8. NITROGLYCERIN [Concomitant]
  9. ASPIRIN [Concomitant]
  10. CLOPIDOGREL BISULFATE [Concomitant]
  11. OMEGA THREE MARINE TRIGYCERIDES [Concomitant]
  12. OXYCODONE [Concomitant]
  13. VITAMIN D [Concomitant]
  14. ANASTROZOLE [Suspect]
     Route: 048
  15. OMEPRAZOLE [Suspect]
     Route: 048
  16. LISINOPRIL [Suspect]
     Route: 048
  17. INSULIN LISPRO [Concomitant]
  18. VITAMIN TAB [Concomitant]

REACTIONS (7)
  - ARTERIOVENOUS SHUNT OPERATION [None]
  - CHEST PAIN [None]
  - DIZZINESS [None]
  - HAEMATOMA [None]
  - CORONARY ARTERIAL STENT INSERTION [None]
  - HYPOTENSION [None]
  - MEDICAL DEVICE COMPLICATION [None]
